FAERS Safety Report 11625213 (Version 3)
Quarter: 2015Q4

REPORT INFORMATION
  Report Type: Report from Study
  Country: CA (occurrence: CA)
  Receive Date: 20151013
  Receipt Date: 20151202
  Transmission Date: 20160304
  Serious: Yes (Hospitalization)
  Sender: FDA-Public Use
  Company Number: CA-JNJFOC-20151004981

PATIENT
  Sex: Female
  Weight: 37.2 kg

DRUGS (1)
  1. REMICADE [Suspect]
     Active Substance: INFLIXIMAB
     Indication: CROHN^S DISEASE
     Route: 042
     Dates: start: 20150611

REACTIONS (9)
  - Faeces soft [Unknown]
  - Nausea [Unknown]
  - Decreased appetite [Unknown]
  - Vomiting [Unknown]
  - Oropharyngeal pain [Unknown]
  - Pyrexia [Unknown]
  - Abdominal pain upper [Unknown]
  - Flank pain [Unknown]
  - Inflammatory bowel disease [Unknown]
